FAERS Safety Report 23041962 (Version 2)
Quarter: 2023Q4

REPORT INFORMATION
  Report Type: Spontaneous
  Country: None (occurrence: US)
  Receive Date: 20231007
  Receipt Date: 20231017
  Transmission Date: 20240109
  Serious: Yes (Hospitalization)
  Sender: FDA-Public Use
  Company Number: US-Rare Disease Therapeutics, Inc.-2146790

PATIENT
  Age: 40 Year
  Sex: Female
  Weight: 70.31 kg

DRUGS (4)
  1. ANAVIP [Suspect]
     Active Substance: PIT VIPER (CROTALINAE) IMMUNE GLOBULIN ANTIVENIN (EQUINE)
     Indication: Snake bite
     Route: 042
     Dates: start: 20230922, end: 20230923
  2. SOLU-MEDROL [Concomitant]
     Active Substance: METHYLPREDNISOLONE SODIUM SUCCINATE
     Route: 042
  3. BENADRYL [Concomitant]
     Active Substance: DIPHENHYDRAMINE HYDROCHLORIDE
     Route: 042
  4. PEPCID [Concomitant]
     Active Substance: FAMOTIDINE
     Route: 042

REACTIONS (3)
  - Rash [Recovering/Resolving]
  - Angioedema [Recovering/Resolving]
  - Rash [Recovering/Resolving]

NARRATIVE: CASE EVENT DATE: 20230923
